FAERS Safety Report 13630712 (Version 1)
Quarter: 2017Q2

REPORT INFORMATION
  Report Type: Spontaneous
  Country: US (occurrence: US)
  Receive Date: 20170531
  Receipt Date: 20170531
  Transmission Date: 20170830
  Serious: No
  Sender: FDA-Public Use
  Company Number: US-ASTELLAS-1323424

PATIENT
  Age: 72 Year
  Sex: Female

DRUGS (3)
  1. TARCEVA [Suspect]
     Active Substance: ERLOTINIB HYDROCHLORIDE
     Indication: BREAST CANCER FEMALE
  2. NEXIUM [Concomitant]
     Active Substance: ESOMEPRAZOLE MAGNESIUM
  3. TARCEVA [Suspect]
     Active Substance: ERLOTINIB HYDROCHLORIDE
     Indication: LUNG NEOPLASM MALIGNANT
     Dosage: DAILY
     Route: 048
     Dates: start: 20131015

REACTIONS (3)
  - Peptic ulcer [Unknown]
  - Cough [Unknown]
  - Dyspepsia [Unknown]

NARRATIVE: CASE EVENT DATE: 20140115
